FAERS Safety Report 16763772 (Version 3)
Quarter: 2019Q4

REPORT INFORMATION
  Report Type: Spontaneous
  Country: PL (occurrence: PL)
  Receive Date: 20190902
  Receipt Date: 20191203
  Transmission Date: 20200122
  Serious: Yes (Hospitalization, Other)
  Sender: FDA-Public Use
  Company Number: PHHY2019PL201993

PATIENT
  Age: 25 Year
  Sex: Female

DRUGS (11)
  1. PAPAVERINE [Suspect]
     Active Substance: PAPAVERINE
     Indication: PRODUCT USED FOR UNKNOWN INDICATION
     Dosage: UNK
     Route: 042
  2. PARACETAMOL [Suspect]
     Active Substance: ACETAMINOPHEN
     Indication: PRODUCT USED FOR UNKNOWN INDICATION
     Dosage: UNK
     Route: 065
  3. DROTAVERINE [Suspect]
     Active Substance: DROTAVERINE
     Indication: PRODUCT USED FOR UNKNOWN INDICATION
     Dosage: UNK
     Route: 042
  4. KETOPROFEN. [Suspect]
     Active Substance: KETOPROFEN
     Indication: BACK PAIN
     Dosage: UNK
     Route: 048
  5. KETOPROFEN. [Suspect]
     Active Substance: KETOPROFEN
     Dosage: UNK
     Route: 042
  6. NIMESULIDE [Suspect]
     Active Substance: NIMESULIDE
     Indication: BACK PAIN
     Dosage: UNK
     Route: 065
  7. PETHIDINE [Suspect]
     Active Substance: MEPERIDINE
     Indication: PRODUCT USED FOR UNKNOWN INDICATION
     Dosage: UNK
     Route: 042
  8. METAMIZOLE [Suspect]
     Active Substance: METAMIZOLE
     Indication: BACK PAIN
     Dosage: 3 G, QD
     Route: 042
  9. OMEPRAZOLE. [Suspect]
     Active Substance: OMEPRAZOLE
     Indication: PRODUCT USED FOR UNKNOWN INDICATION
     Dosage: UNK
     Route: 042
  10. METOCLOPRAMIDE. [Suspect]
     Active Substance: METOCLOPRAMIDE
     Indication: PRODUCT USED FOR UNKNOWN INDICATION
     Dosage: UNK
     Route: 042
  11. LACTULOSE. [Suspect]
     Active Substance: LACTULOSE
     Indication: PRODUCT USED FOR UNKNOWN INDICATION
     Dosage: UNK
     Route: 065

REACTIONS (9)
  - Gastritis [Unknown]
  - Amylase increased [Recovered/Resolved]
  - Abdominal pain [Unknown]
  - Pancreatitis acute [Recovered/Resolved]
  - Helicobacter infection [Unknown]
  - Helicobacter gastritis [Recovered/Resolved]
  - Abdominal pain upper [Recovered/Resolved]
  - Pancreatic enzymes increased [Recovered/Resolved]
  - Lipase increased [Recovered/Resolved]
